FAERS Safety Report 16962141 (Version 1)
Quarter: 2019Q4

REPORT INFORMATION
  Report Type: Spontaneous
  Country: HR (occurrence: HR)
  Receive Date: 20191025
  Receipt Date: 20191025
  Transmission Date: 20200122
  Serious: Yes (Death, Hospitalization, Other)
  Sender: FDA-Public Use
  Company Number: HR-JNJFOC-20191030911

PATIENT
  Sex: Male

DRUGS (7)
  1. LANITOP [Concomitant]
     Active Substance: METILDIGOXIN
     Dosage: 1 DF, QD
     Route: 065
  2. TRICOR                             /00090101/ [Concomitant]
     Active Substance: ADENOSINE
     Dosage: 160 MG, QD
     Route: 065
  3. TRITACE [Concomitant]
     Active Substance: RAMIPRIL
     Dosage: 5 MG, BID
     Route: 065
  4. SIOFOR [Concomitant]
     Active Substance: METFORMIN HYDROCHLORIDE
     Dosage: 500 MG, BID
     Route: 065
  5. BISOPROLOL FUMARATE. [Concomitant]
     Active Substance: BISOPROLOL FUMARATE
     Dosage: 2.5 MG, QD
     Route: 065
  6. FUROSEMIDE. [Concomitant]
     Active Substance: FUROSEMIDE
     Dosage: UNK
     Route: 065
  7. RIVAROXABAN [Suspect]
     Active Substance: RIVAROXABAN
     Indication: ATRIAL FIBRILLATION
     Dosage: 20 MG, QD
     Route: 048
     Dates: start: 2018

REACTIONS (13)
  - Dysarthria [Unknown]
  - Headache [Unknown]
  - Muscle twitching [Unknown]
  - Cerebral haematoma [Unknown]
  - Hemiparesis [Unknown]
  - Muscular weakness [Unknown]
  - Eyelid ptosis [Unknown]
  - Pyrexia [Unknown]
  - Hemianopia homonymous [Unknown]
  - Pupils unequal [Unknown]
  - Haemorrhage intracranial [Unknown]
  - Death [Fatal]
  - Circulatory collapse [Unknown]

NARRATIVE: CASE EVENT DATE: 20191013
